FAERS Safety Report 4517926-0 (Version None)
Quarter: 2004Q4

REPORT INFORMATION
  Report Type: 
  Country: None (occurrence: None)
  Receive Date: 20041201
  Receipt Date: 20041201
  Transmission Date: 20050328
  Serious: No
  Sender: FDA-Public Use
  Company Number: None

PATIENT
  Age: 70 Year
  Sex: Female
  Weight: 63.9572 kg

DRUGS (1)
  1. PENTAZOCINE [Suspect]

REACTIONS (3)
  - DRUG INTERACTION [None]
  - GAIT DISTURBANCE [None]
  - SOMNOLENCE [None]
